FAERS Safety Report 18443668 (Version 6)
Quarter: 2021Q2

REPORT INFORMATION
  Report Type: Report from Study
  Country: US (occurrence: US)
  Receive Date: 20201029
  Receipt Date: 20210429
  Transmission Date: 20210717
  Serious: Yes (Death, Other)
  Sender: FDA-Public Use
  Company Number: US-EXELIXIS-XL18420034250

PATIENT
  Age: 77 Year
  Sex: Male

DRUGS (22)
  1. XL184 [Suspect]
     Active Substance: CABOZANTINIB
     Indication: NON-SMALL CELL LUNG CANCER
     Dosage: 60 MG, QD
     Route: 048
     Dates: start: 20191217
  2. XL184 [Suspect]
     Active Substance: CABOZANTINIB
     Dosage: 20 MG, QOD
     Route: 048
  3. DEXAMETHASONE. [Concomitant]
     Active Substance: DEXAMETHASONE
  4. IMODIUM [Concomitant]
     Active Substance: LOPERAMIDE HYDROCHLORIDE
  5. LEVOPHED BITARTRATE [Concomitant]
  6. SODIUM BICARBONATE. [Concomitant]
     Active Substance: SODIUM BICARBONATE
  7. FUROSEMIDE. [Concomitant]
     Active Substance: FUROSEMIDE
  8. NORMAL SALINE [Concomitant]
     Active Substance: SODIUM CHLORIDE
  9. EPINEPHRINE. [Concomitant]
     Active Substance: EPINEPHRINE
  10. METOPROLOL SUCCINATE. [Concomitant]
     Active Substance: METOPROLOL SUCCINATE
  11. ZOFRAN [Concomitant]
     Active Substance: ONDANSETRON HYDROCHLORIDE
  12. CLONAZEPAM. [Concomitant]
     Active Substance: CLONAZEPAM
  13. MONTELUKAST [Concomitant]
     Active Substance: MONTELUKAST SODIUM
  14. LEVOTHYROXINE AND LIOTHYRONINE [Concomitant]
  15. ELIQUIS [Concomitant]
     Active Substance: APIXABAN
  16. ENTRESTO [Concomitant]
     Active Substance: SACUBITRIL\VALSARTAN
  17. NEO?SYNEPHRINE [Concomitant]
     Active Substance: PHENYLEPHRINE HYDROCHLORIDE
  18. AMIDATE [Concomitant]
     Active Substance: ETOMIDATE
  19. POTASSIUM CHLORIDE. [Concomitant]
     Active Substance: POTASSIUM CHLORIDE
  20. PROPOFOL. [Concomitant]
     Active Substance: PROPOFOL
  21. ATORVASTATIN [Concomitant]
     Active Substance: ATORVASTATIN
  22. ESCITALOPRAM [Concomitant]
     Active Substance: ESCITALOPRAM OXALATE

REACTIONS (2)
  - Gastric ulcer [Not Recovered/Not Resolved]
  - Gastric ulcer haemorrhage [Fatal]

NARRATIVE: CASE EVENT DATE: 20201008
